FAERS Safety Report 25386248 (Version 1)
Quarter: 2025Q2

REPORT INFORMATION
  Report Type: Spontaneous
  Country: NZ (occurrence: None)
  Receive Date: 20250530
  Receipt Date: 20250530
  Transmission Date: 20250716
  Serious: Yes (Life-Threatening, Disabling)
  Sender: FDA-CTU
  Company Number: None

PATIENT
  Age: 18 Year
  Sex: Female
  Weight: 65 kg

DRUGS (1)
  1. CITALOPRAM [Suspect]
     Active Substance: CITALOPRAM
     Indication: Depression
     Route: 048
     Dates: start: 20080603, end: 20080701

REACTIONS (21)
  - Abnormal dreams [None]
  - Emotional disorder [None]
  - Blunted affect [None]
  - Derealisation [None]
  - Attention deficit hyperactivity disorder [None]
  - Asocial behaviour [None]
  - Auditory disorder [None]
  - Aphasia [None]
  - Hypoaesthesia [None]
  - Menstrual disorder [None]
  - Photophobia [None]
  - Misophonia [None]
  - Anhedonia [None]
  - Irritable bowel syndrome [None]
  - Bladder pain [None]
  - Peritonitis [None]
  - Dysphagia [None]
  - Upper-airway cough syndrome [None]
  - Suicidal ideation [None]
  - Sexual dysfunction [None]
  - Blunted affect [None]

NARRATIVE: CASE EVENT DATE: 20080624
